FAERS Safety Report 6942420-7 (Version None)
Quarter: 2010Q3

REPORT INFORMATION
  Report Type: 
  Country: None (occurrence: None)
  Receive Date: 20100826
  Receipt Date: 20100817
  Transmission Date: 20110219
  Serious: Yes (Other)
  Sender: FDA-Public Use
  Company Number: US-JNJFOC-20100806326

PATIENT
  Age: 15 Year
  Sex: Female
  Weight: 49.9 kg

DRUGS (4)
  1. REMICADE [Suspect]
     Indication: COLITIS ULCERATIVE
     Route: 042
  2. REMICADE [Suspect]
     Route: 042
  3. MERCAPTOPURINE [Concomitant]
     Indication: COLITIS ULCERATIVE
  4. FERROUS SULFATE [Concomitant]
     Indication: NUTRITIONAL SUPPORT

REACTIONS (1)
  - PYODERMA GANGRENOSUM [None]
